FAERS Safety Report 9037573 (Version 2)
Quarter: 2013Q2

REPORT INFORMATION
  Report Type: Spontaneous
  Country: US (occurrence: None)
  Receive Date: 20120426
  Receipt Date: 20120703
  Transmission Date: 20140414
  Serious: Yes (Other)
  Sender: FDA-Public Use
  Company Number: PHEH2011US04836

PATIENT
  Age: 54 Year
  Sex: Female

DRUGS (1)
  1. GILENYA [Suspect]
     Indication: MULTIPLE SCLEROSIS
     Dosage: 0.5 MG,  DAILY,  ORAL
     Route: 048
     Dates: start: 20110606, end: 20120217

REACTIONS (5)
  - Multiple sclerosis [None]
  - Memory impairment [None]
  - Nasopharyngitis [None]
  - Headache [None]
  - Drug ineffective [None]
